FAERS Safety Report 15849237 (Version 1)
Quarter: 2019Q1

REPORT INFORMATION
  Report Type: Spontaneous
  Country: ES (occurrence: ES)
  Receive Date: 20190121
  Receipt Date: 20190121
  Transmission Date: 20190417
  Serious: Yes (Other)
  Sender: FDA-Public Use
  Company Number: ES-BAYER-2019-009539

PATIENT
  Age: 63 Year
  Sex: Female
  Weight: 56 kg

DRUGS (8)
  1. URSOBILANE [Concomitant]
  2. NEXAVAR [Suspect]
     Active Substance: SORAFENIB
     Indication: HEPATIC CANCER
     Dosage: 200 MG, UNK
     Route: 050
     Dates: start: 20180130, end: 20180220
  3. DILTIAZEM. [Concomitant]
     Active Substance: DILTIAZEM
  4. PANTOPRAZOL +PHARMA [Concomitant]
  5. ATORVASTATINA [ATORVASTATIN] [Concomitant]
  6. CELLCEPT [Concomitant]
     Active Substance: MYCOPHENOLATE MOFETIL\MYCOPHENOLATE MOFETIL HYDROCHLORIDE
     Dosage: 1 G, UNK
  7. ADVAGRAF [Concomitant]
     Active Substance: TACROLIMUS
  8. HIBOR (BEMIPARIN SODIUM) [Concomitant]
     Active Substance: BEMIPARIN SODIUM

REACTIONS (2)
  - Pneumatosis intestinalis [Recovered/Resolved]
  - Pneumoperitoneum [Recovered/Resolved]

NARRATIVE: CASE EVENT DATE: 20180220
